FAERS Safety Report 5743654-X (Version None)
Quarter: 2008Q2

REPORT INFORMATION
  Report Type: 
  Country: None (occurrence: None)
  Receive Date: 20080516
  Receipt Date: 20080508
  Transmission Date: 20081010
  Serious: Yes (Death, Life-Threatening)
  Sender: FDA-Public Use
  Company Number: 000893

PATIENT
  Age: 30 Year
  Sex: Male

DRUGS (6)
  1. BUSULFEX [Suspect]
     Indication: STEM CELL TRANSPLANT
     Dosage: 34.8 ML
     Dates: start: 20061130, end: 20061203
  2. CYCLOPHOSPHAMIDE [Suspect]
     Dates: start: 20061204, end: 20061205
  3. NEUPOGEN [Concomitant]
  4. METHOTREXATE [Concomitant]
  5. TACROLIMUS [Concomitant]
  6. VALPROATE SODIUM [Concomitant]

REACTIONS (17)
  - ALANINE AMINOTRANSFERASE INCREASED [None]
  - ASPARTATE AMINOTRANSFERASE INCREASED [None]
  - BLOOD CREATININE INCREASED [None]
  - BONE MARROW FAILURE [None]
  - BONE MARROW TRANSPLANT [None]
  - CEREBROVASCULAR ACCIDENT [None]
  - DELAYED ENGRAFTMENT [None]
  - DIARRHOEA [None]
  - FEBRILE NEUTROPENIA [None]
  - GRAFT VERSUS HOST DISEASE [None]
  - HYPERGLYCAEMIA [None]
  - HYPERKALAEMIA [None]
  - JAUNDICE [None]
  - NEUTROPHIL COUNT DECREASED [None]
  - PNEUMONIA STAPHYLOCOCCAL [None]
  - STAPHYLOCOCCAL SEPSIS [None]
  - STOMATITIS [None]
